FAERS Safety Report 18704684 (Version 1)
Quarter: 2021Q1

REPORT INFORMATION
  Report Type: Spontaneous
  Country: US (occurrence: US)
  Receive Date: 20210105
  Receipt Date: 20210105
  Transmission Date: 20210419
  Serious: Yes (Other)
  Sender: FDA-Public Use
  Company Number: US-LUPIN PHARMACEUTICALS INC.-2020-11344

PATIENT
  Age: 70 Year
  Sex: Male

DRUGS (14)
  1. ARGININE VASOPRESSIN [Suspect]
     Active Substance: VASOPRESSIN
     Indication: VASOPLEGIA SYNDROME
     Dosage: UNK (0.06 UNITS PER MINUTE)
     Route: 065
  2. NOREPINEPHRINE. [Suspect]
     Active Substance: NOREPINEPHRINE
     Dosage: 0.25 MICROGRAM PER KILOGRAM PER MINUTE
     Route: 065
  3. ANGIOTENSIN II [Concomitant]
     Active Substance: ANGIOTENSIN II
     Indication: VASOPLEGIA SYNDROME
     Dosage: UNK (10 NANOGRAM PER KILOGRAM PER MINUTE)
     Route: 065
  4. NOREPINEPHRINE. [Suspect]
     Active Substance: NOREPINEPHRINE
     Dosage: 10 MICROGRAM PER MINUTE
     Route: 065
  5. NOREPINEPHRINE. [Suspect]
     Active Substance: NOREPINEPHRINE
     Dosage: INCREASED DOSE TO MAINTAIN MAP MORE THAN 65 MM HG
     Route: 065
  6. EPINEPHRINE. [Suspect]
     Active Substance: EPINEPHRINE
     Dosage: UNK (UNSPECIFIED LOW DOSE)
     Route: 065
  7. ARGININE VASOPRESSIN [Suspect]
     Active Substance: VASOPRESSIN
     Dosage: UNK (0.04 UNITS PER MINUTE)
     Route: 065
  8. FLUDROCORTISONE [Concomitant]
     Active Substance: FLUDROCORTISONE
     Indication: HYPOTENSION
     Dosage: UNK
     Route: 065
  9. NOREPINEPHRINE. [Suspect]
     Active Substance: NOREPINEPHRINE
     Dosage: LOW DOSE
     Route: 065
  10. ANGIOTENSIN II [Concomitant]
     Active Substance: ANGIOTENSIN II
     Dosage: UNK (15 NANOGRAM PER KILOGRAM PER MINUTE)
     Route: 065
  11. NOREPINEPHRINE. [Suspect]
     Active Substance: NOREPINEPHRINE
     Indication: VASOPLEGIA SYNDROME
     Dosage: UNK,TITRATION TO 0.625 MICROGRAM PER KILOGRAM PER MINUTE WITHIN THE FIRST 30 MINUTES
     Route: 065
  12. HYDROCORTISONE. [Suspect]
     Active Substance: HYDROCORTISONE
     Indication: VASOPLEGIA SYNDROME
     Dosage: UNK, CONTINUATION OF STRESS DOSE
     Route: 065
  13. METHYLENE BLUE. [Suspect]
     Active Substance: METHYLENE BLUE
     Indication: VASOPLEGIA SYNDROME
     Dosage: 2 MILLIGRAM/KILOGRAM
     Route: 065
  14. EPINEPHRINE. [Suspect]
     Active Substance: EPINEPHRINE
     Indication: VASOPLEGIA SYNDROME
     Dosage: 2 MICROGRAM PER MINUTE
     Route: 065

REACTIONS (2)
  - Off label use [Unknown]
  - Drug ineffective [Unknown]
